FAERS Safety Report 23276919 (Version 1)
Quarter: 2023Q4

REPORT INFORMATION
  Report Type: Spontaneous
  Country: US (occurrence: None)
  Receive Date: 20231207
  Receipt Date: 20231207
  Transmission Date: 20240109
  Serious: Yes (Life-Threatening)
  Sender: FDA-Public Use
  Company Number: None

PATIENT
  Sex: Male
  Weight: 88.45 kg

DRUGS (3)
  1. THORAZINE [Suspect]
     Active Substance: CHLORPROMAZINE
     Indication: Schizophrenia
     Dosage: UNIT DOSE: 20 PILL
     Dates: start: 1977, end: 1989
  2. HALDOL [Suspect]
     Active Substance: HALOPERIDOL
     Route: 048
     Dates: start: 1977, end: 1989
  3. UNSPECIFIED INGREDIENT [Concomitant]
     Active Substance: UNSPECIFIED INGREDIENT

REACTIONS (5)
  - Paralysis [None]
  - Trismus [None]
  - Eye movement disorder [None]
  - Injection site pain [None]
  - Overdose [None]
